FAERS Safety Report 21690241 (Version 2)
Quarter: 2023Q1

REPORT INFORMATION
  Report Type: Spontaneous
  Country: US (occurrence: US)
  Receive Date: 20221206
  Receipt Date: 20230302
  Transmission Date: 20230417
  Serious: No
  Sender: FDA-Public Use
  Company Number: US-BRAINTREE LABORATORIES, INC.-2022BTE00917

PATIENT
  Age: 71 Year
  Sex: Male

DRUGS (13)
  1. SUTAB [Suspect]
     Active Substance: MAGNESIUM SULFATE\POTASSIUM CHLORIDE\SODIUM SULFATE
     Indication: Colonoscopy
     Dosage: 2 X 12 TABLETS, 1X
     Route: 048
     Dates: start: 20221031, end: 2022
  2. VITAMIN C [Concomitant]
     Active Substance: ASCORBIC ACID
  3. VITAMIN D3 [Concomitant]
     Active Substance: CHOLECALCIFEROL
  4. VITAMINS [Concomitant]
     Active Substance: VITAMINS
  5. ZINC [Concomitant]
     Active Substance: ZINC
  6. METAMUCIL [Concomitant]
     Active Substance: PLANTAGO SEED
  7. ASPIRIN [Concomitant]
     Active Substance: ASPIRIN
  8. LISINOPRIL [Concomitant]
     Active Substance: LISINOPRIL
  9. PROBENECID [Concomitant]
     Active Substance: PROBENECID
  10. ALLOPURINOL [Concomitant]
     Active Substance: ALLOPURINOL
  11. TURMERIC [Concomitant]
     Active Substance: TURMERIC
  12. COCONUT OIL [Concomitant]
     Active Substance: COCONUT OIL
  13. GLUCOSAMINE [Concomitant]
     Active Substance: GLUCOSAMINE

REACTIONS (1)
  - Drug ineffective [Recovered/Resolved]

NARRATIVE: CASE EVENT DATE: 20221101
